FAERS Safety Report 4691964-X (Version None)
Quarter: 2005Q2

REPORT INFORMATION
  Report Type: 
  Country: None (occurrence: None)
  Receive Date: 20050614
  Receipt Date: 20050603
  Transmission Date: 20051028
  Serious: Yes (Life-Threatening, Hospitalization)
  Sender: FDA-Public Use
  Company Number: 215017

PATIENT
  Age: 6 Year
  Sex: Female
  Weight: 17.9 kg

DRUGS (18)
  1. NUTROPIN AQ [Suspect]
     Indication: RENAL FAILURE CHRONIC
     Dosage: 0.7 MG, QD, SUBCUTANEOUS
     Route: 058
     Dates: end: 20050313
  2. NUTROPIN AQ [Suspect]
     Indication: RENAL FAILURE CHRONIC
     Dosage: 0.7 MG, QD, SUBCUTANEOUS
     Route: 058
     Dates: start: 20050518
  3. HYDRALAZINE HCL [Concomitant]
  4. LABETALOL (LABETALOL HYDROCHLORIDE) [Concomitant]
  5. PREDNISONE [Concomitant]
  6. NYSTATIN POWDER (NYSTATIN) [Concomitant]
  7. SALINE SOLUTION (SODIUM CHLORIDE) [Concomitant]
  8. NUTREN (NUTRITIONAL SUPPLEMENT) [Concomitant]
  9. PANCRELIPASE (PANCRELIPASE) [Concomitant]
  10. LOPERAMIDE [Concomitant]
  11. DIPHENOXYLATE (DIPHENOXYLATE HYDROCHLORIDE) [Concomitant]
  12. TMP-SMX (SULFAMETHOXAZOLE, TRIMETHOPRIM) [Concomitant]
  13. TACROLIMUS (TACROLIMUS) [Concomitant]
  14. ATROVENT [Concomitant]
  15. NYSTATIN SUSP (NYSTATIN) [Concomitant]
  16. AMLODIPINE BESYLATE [Concomitant]
  17. OMEPRAZOLE [Concomitant]
  18. ENALAPRIL MALEATE [Concomitant]

REACTIONS (4)
  - PNEUMONIA INFLUENZAL [None]
  - PNEUMONIA KLEBSIELLA [None]
  - PNEUMONIA MYCOPLASMAL [None]
  - PNEUMONIA PARAINFLUENZAE VIRAL [None]
